FAERS Safety Report 11580671 (Version 6)
Quarter: 2016Q1

REPORT INFORMATION
  Report Type: Report from Study
  Country: BR (occurrence: BR)
  Receive Date: 20150930
  Receipt Date: 20160318
  Transmission Date: 20160525
  Serious: Yes (Hospitalization, Other)
  Sender: FDA-Public Use
  Company Number: PHHY2015BR116972

PATIENT
  Age: 87 Year
  Sex: Female
  Weight: 44 kg

DRUGS (8)
  1. OSCAL D [Concomitant]
     Active Substance: CALCIUM CARBONATE\CHOLECALCIFEROL
     Indication: VITAMIN SUPPLEMENTATION
     Dosage: 1 DF, QD
     Route: 048
  2. EXELON PATCH [Suspect]
     Active Substance: RIVASTIGMINE
     Indication: MEMORY IMPAIRMENT
     Dosage: 1 DF, QD (5MG)
     Route: 062
     Dates: start: 201509
  3. EXELON PATCH [Suspect]
     Active Substance: RIVASTIGMINE
     Indication: DEMENTIA
     Dosage: 4.6 MG, QD (9 MG / EXELON 5 CM2 PATCH)
     Route: 062
     Dates: start: 201510
  4. ALENIA                             /01538101/ [Concomitant]
     Active Substance: BUDESONIDE\FORMOTEROL FUMARATE
     Indication: ASTHMA
     Dosage: 2 DF (2 INHALATIONS), QD
     Route: 055
  5. OMEPRAZOLE. [Concomitant]
     Active Substance: OMEPRAZOLE
     Indication: PROPHYLAXIS
     Dosage: 1 DF, QD (20 MG)
     Route: 048
  6. ACLASTA [Suspect]
     Active Substance: ZOLEDRONIC ACID
     Indication: OSTEOPOROSIS
     Dosage: 5 MG (100ML), Q12MO
     Route: 042
     Dates: start: 201505
  7. MAXAPRAN [Concomitant]
     Indication: PROPHYLAXIS
     Route: 065
  8. MOTILIUM [Concomitant]
     Active Substance: DOMPERIDONE
     Indication: REFLUX GASTRITIS
     Dosage: 2 DF, QD (10 MG)
     Route: 048

REACTIONS (7)
  - Drug ineffective [Unknown]
  - Femur fracture [Recovering/Resolving]
  - Hip fracture [Recovering/Resolving]
  - Dementia [Recovering/Resolving]
  - Pelvic fracture [Recovering/Resolving]
  - Fall [Recovering/Resolving]
  - Fracture [Unknown]

NARRATIVE: CASE EVENT DATE: 201509
